FAERS Safety Report 10334315 (Version 1)
Quarter: 2014Q3

REPORT INFORMATION
  Report Type: Spontaneous
  Country: JP (occurrence: JP)
  Receive Date: 20140723
  Receipt Date: 20140723
  Transmission Date: 20150326
  Serious: Yes (Death)
  Sender: FDA-Public Use
  Company Number: PHHY2014JP088650

PATIENT
  Sex: Female

DRUGS (2)
  1. SOLIRIS [Concomitant]
     Active Substance: ECULIZUMAB
     Dosage: UNK UKN, UNK
     Dates: start: 201308, end: 201405
  2. EXJADE [Suspect]
     Active Substance: DEFERASIROX
     Indication: MYELODYSPLASTIC SYNDROME
     Dosage: 500 MG, DAILY
     Route: 048
     Dates: start: 201301

REACTIONS (1)
  - Sepsis [Fatal]
